FAERS Safety Report 20234419 (Version 1)
Quarter: 2021Q4

REPORT INFORMATION
  Report Type: Spontaneous
  Country: CA (occurrence: CA)
  Receive Date: 20211227
  Receipt Date: 20211227
  Transmission Date: 20220303
  Serious: Yes (Death)
  Sender: FDA-Public Use
  Company Number: CA-TEVA-2021-CA-1991882

PATIENT
  Age: 46 Year
  Sex: Female

DRUGS (6)
  1. CITALOPRAM HYDROBROMIDE [Suspect]
     Active Substance: CITALOPRAM HYDROBROMIDE
     Route: 065
  2. CODEINE [Suspect]
     Active Substance: CODEINE
     Route: 065
  3. DIPHENHYDRAMINE [Suspect]
     Active Substance: DIPHENHYDRAMINE
     Route: 065
  4. GABAPENTIN [Suspect]
     Active Substance: GABAPENTIN
     Route: 065
  5. TEMAZEPAM [Suspect]
     Active Substance: TEMAZEPAM
     Route: 065
  6. METHADONE [Suspect]
     Active Substance: METHADONE HYDROCHLORIDE
     Route: 065

REACTIONS (1)
  - Overdose [Fatal]
